FAERS Safety Report 24748565 (Version 2)
Quarter: 2025Q1

REPORT INFORMATION
  Report Type: Report from Study
  Country: US (occurrence: US)
  Receive Date: 20241218
  Receipt Date: 20250113
  Transmission Date: 20250408
  Serious: Yes (Hospitalization, Other)
  Sender: MERCK
  Company Number: US-009507513-2411USA006833

PATIENT
  Age: 78 Year
  Sex: Female
  Weight: 73.923 kg

DRUGS (24)
  1. SOTATERCEPT [Suspect]
     Active Substance: SOTATERCEPT
     Indication: Pulmonary arterial hypertension
     Dosage: 1.1 MILLILITER, Q3W
     Route: 058
     Dates: start: 20240820
  2. WINREVAIR [Suspect]
     Active Substance: SOTATERCEPT-CSRK
     Indication: Pulmonary arterial hypertension
  3. REMODULIN [Suspect]
     Active Substance: TREPROSTINIL
     Indication: Pulmonary arterial hypertension
     Route: 058
     Dates: start: 20230710
  4. REMODULIN [Suspect]
     Active Substance: TREPROSTINIL
     Route: 058
  5. TRELEGY ELLIPTA [Concomitant]
     Active Substance: FLUTICASONE FUROATE\UMECLIDINIUM BROMIDE\VILANTEROL TRIFENATATE
  6. KLOR-CON M20 [Concomitant]
     Active Substance: POTASSIUM CHLORIDE
  7. ACETAMINOPHEN [Concomitant]
     Active Substance: ACETAMINOPHEN
  8. MONASCUS PURPUREUS [Concomitant]
     Active Substance: RED YEAST
  9. SILDENAFIL [Concomitant]
     Active Substance: SILDENAFIL
  10. OPSUMIT [Concomitant]
     Active Substance: MACITENTAN
  11. METFORMIN HYDROCHLORIDE [Concomitant]
     Active Substance: METFORMIN HYDROCHLORIDE
  12. TRAMADOL HCL [Concomitant]
     Active Substance: TRAMADOL HYDROCHLORIDE
  13. OXYGEN [Concomitant]
     Active Substance: OXYGEN
  14. IRON [Concomitant]
     Active Substance: IRON
  15. VITAMIN B12 [Concomitant]
     Active Substance: CYANOCOBALAMIN
  16. TORSEMIDE [Concomitant]
     Active Substance: TORSEMIDE
  17. FISH OIL [Concomitant]
     Active Substance: FISH OIL
  18. AZELASTINE HYDROCHLORIDE\FLUTICASONE PROPIONATE [Concomitant]
     Active Substance: AZELASTINE HYDROCHLORIDE\FLUTICASONE PROPIONATE
  19. ASPIRIN [Concomitant]
     Active Substance: ASPIRIN
  20. DOXYCYCLINE [Concomitant]
     Active Substance: DOXYCYCLINE
  21. TYLENOL [Concomitant]
     Active Substance: ACETAMINOPHEN
  22. DIETARY SUPPLEMENT [Concomitant]
     Active Substance: DIETARY SUPPLEMENT
  23. OSMOTYL [Concomitant]
  24. SPIRONOLACTONE [Concomitant]
     Active Substance: SPIRONOLACTONE

REACTIONS (3)
  - Cerebrovascular accident [Unknown]
  - Anaemia [Unknown]
  - Impaired healing [Recovering/Resolving]

NARRATIVE: CASE EVENT DATE: 20250106
